FAERS Safety Report 23422621 (Version 1)
Quarter: 2024Q1

REPORT INFORMATION
  Report Type: Spontaneous
  Country: US (occurrence: US)
  Receive Date: 20240119
  Receipt Date: 20240119
  Transmission Date: 20240410
  Serious: No
  Sender: FDA-Public Use
  Company Number: US-MYLANLABS-2024M1001009

PATIENT
  Age: 65 Year
  Sex: Female

DRUGS (1)
  1. TYRVAYA [Suspect]
     Active Substance: VARENICLINE TARTRATE
     Indication: Product used for unknown indication
     Dosage: UNK, BID (MORNING AND NIGHT)
     Route: 045
     Dates: end: 20231230

REACTIONS (5)
  - Headache [Recovering/Resolving]
  - Oropharyngeal pain [Unknown]
  - Drug ineffective [Unknown]
  - Throat irritation [Unknown]
  - Sinus pain [Unknown]

NARRATIVE: CASE EVENT DATE: 20231201
